FAERS Safety Report 6498204-X (Version None)
Quarter: 2009Q4

REPORT INFORMATION
  Report Type: 
  Country: None (occurrence: None)
  Receive Date: 20091215
  Receipt Date: 20091208
  Transmission Date: 20100525
  Serious: Yes (Life-Threatening, Hospitalization, Disabling, Other)
  Sender: FDA-Public Use
  Company Number: A0834137A

PATIENT
  Age: 58 Year
  Sex: Female

DRUGS (1)
  1. AVANDIA [Suspect]
     Dosage: 8MG PER DAY
     Route: 048
     Dates: start: 20030210, end: 20080101

REACTIONS (3)
  - CARDIOMYOPATHY [None]
  - EJECTION FRACTION DECREASED [None]
  - STENT PLACEMENT [None]
